FAERS Safety Report 13850279 (Version 1)
Quarter: 2017Q3

REPORT INFORMATION
  Report Type: Spontaneous
  Country: CN (occurrence: CN)
  Receive Date: 20170809
  Receipt Date: 20170809
  Transmission Date: 20171127
  Serious: Yes (Hospitalization)
  Sender: FDA-Public Use
  Company Number: CN-PFIZER INC-2017340204

PATIENT
  Age: 76 Year
  Sex: Male
  Weight: 70 kg

DRUGS (6)
  1. CINEPAZIDE [Suspect]
     Active Substance: CINEPAZIDE
     Indication: CARDIOVASCULAR DISORDER
     Dosage: 0.32 G, 1X/DAY
     Route: 041
     Dates: start: 20170524, end: 20170526
  2. DYNASTAT [Suspect]
     Active Substance: PARECOXIB SODIUM
     Indication: ANTIINFLAMMATORY THERAPY
     Dosage: 40 MG, 2X/DAY
     Route: 041
     Dates: start: 20170524, end: 20170526
  3. DYNASTAT [Suspect]
     Active Substance: PARECOXIB SODIUM
     Indication: ANALGESIC THERAPY
  4. SODIUM AESCINATE [Suspect]
     Active Substance: SODIUM ESCINATE
     Indication: SWELLING
     Dosage: 10 MG, 1X/DAY
     Route: 041
     Dates: start: 20170524, end: 20170526
  5. LIPITOR [Suspect]
     Active Substance: ATORVASTATIN CALCIUM
     Indication: ARTERIOSCLEROSIS
     Dosage: 20 MG, 1X/DAY
     Route: 048
     Dates: start: 20170520, end: 20170526
  6. XARELTO [Suspect]
     Active Substance: RIVAROXABAN
     Indication: COAGULOPATHY
     Dosage: 10 MG, 1X/DAY
     Route: 048
     Dates: start: 20170520, end: 20170529

REACTIONS (5)
  - Nephropathy toxic [None]
  - Condition aggravated [Recovering/Resolving]
  - Renal impairment [Recovering/Resolving]
  - Hepatocellular injury [Recovering/Resolving]
  - Hepatotoxicity [None]

NARRATIVE: CASE EVENT DATE: 20170525
